FAERS Safety Report 10442795 (Version 3)
Quarter: 2014Q4

REPORT INFORMATION
  Report Type: Spontaneous
  Country: US (occurrence: US)
  Receive Date: 20140909
  Receipt Date: 20141110
  Transmission Date: 20150528
  Serious: Yes (Hospitalization, Other)
  Sender: FDA-Public Use
  Company Number: US-GILEAD-2014-0114524

PATIENT
  Age: 66 Year
  Sex: Male

DRUGS (4)
  1. LETAIRIS [Suspect]
     Active Substance: AMBRISENTAN
     Dosage: 5 MG, QD
     Route: 065
     Dates: start: 20130514
  2. LETAIRIS [Suspect]
     Active Substance: AMBRISENTAN
     Indication: PRODUCT USED FOR UNKNOWN INDICATION
     Dosage: 5 MG, QD
     Route: 065
     Dates: start: 20130507
  3. ADCIRCA [Concomitant]
     Active Substance: TADALAFIL
  4. WARFARIN [Concomitant]
     Active Substance: WARFARIN

REACTIONS (4)
  - Swelling [Unknown]
  - Dyspnoea [Unknown]
  - Heart valve replacement [Unknown]
  - Post procedural complication [Unknown]
